FAERS Safety Report 24230254 (Version 5)
Quarter: 2025Q4

REPORT INFORMATION
  Report Type: Spontaneous
  Country: JP (occurrence: JP)
  Receive Date: 20240820
  Receipt Date: 20251028
  Transmission Date: 20260117
  Serious: Yes (Hospitalization, Other)
  Sender: BRISTOL-MYERS SQUIBB COMPANY
  Company Number: JP-BRISTOL-MYERS SQUIBB COMPANY-2024-131009

PATIENT
  Age: 69 Year
  Sex: Male

DRUGS (1)
  1. REBLOZYL [Suspect]
     Active Substance: LUSPATERCEPT-AAMT
     Indication: Anaemia of malignant disease
     Route: 058
     Dates: start: 20240620, end: 20240829

REACTIONS (3)
  - Cerebral infarction [Recovered/Resolved with Sequelae]
  - Off label use [Unknown]
  - Paralysis [Unknown]

NARRATIVE: CASE EVENT DATE: 20240701
